FAERS Safety Report 7842553-7 (Version None)
Quarter: 2011Q4

REPORT INFORMATION
  Report Type: 
  Country: None (occurrence: None)
  Receive Date: 20111025
  Receipt Date: 20111014
  Transmission Date: 20120403
  Serious: Yes (Hospitalization)
  Sender: FDA-Public Use
  Company Number: PHHY2011FR91485

PATIENT
  Age: 60 Year
  Sex: Female

DRUGS (3)
  1. RAMIPRIL [Concomitant]
     Dosage: UNK UKN, UNK
  2. TEGRETOL [Suspect]
     Dosage: 400 MG, BID
  3. OMEPRAZOLE [Concomitant]
     Dosage: UNK UKN, UNK

REACTIONS (2)
  - MALAISE [None]
  - HYPONATRAEMIA [None]
